FAERS Safety Report 12477730 (Version 1)
Quarter: 2016Q2

REPORT INFORMATION
  Report Type: Spontaneous
  Country: US (occurrence: US)
  Receive Date: 20160617
  Receipt Date: 20160617
  Transmission Date: 20160815
  Serious: Yes (Other)
  Sender: FDA-Public Use
  Company Number: US-PRINSTON PHARMACEUTICAL INC.-2016PRN00128

PATIENT
  Age: 42 Year
  Sex: Male

DRUGS (5)
  1. PAROXETINE. [Suspect]
     Active Substance: PAROXETINE
     Indication: EMOTIONAL DISTRESS
     Dosage: 20 MG, 1X/DAY
     Route: 065
  2. PAROXETINE. [Suspect]
     Active Substance: PAROXETINE
     Dosage: 40 MG, ONCE
  3. ALCOHOL. [Suspect]
     Active Substance: ALCOHOL
     Dosage: UNK
     Route: 048
  4. BUDESONIDE/FORMOTEROL [Suspect]
     Active Substance: BUDESONIDE\FORMOTEROL
     Indication: ASTHMA
     Route: 065
  5. ALCOHOL. [Suspect]
     Active Substance: ALCOHOL
     Dosage: A DOZEN GLASSES OF BEER
     Route: 048

REACTIONS (4)
  - Homicide [Unknown]
  - Serotonin syndrome [Unknown]
  - Drug interaction [Unknown]
  - Akathisia [Unknown]
